FAERS Safety Report 7831155-4 (Version None)
Quarter: 2011Q4

REPORT INFORMATION
  Report Type: 
  Country: None (occurrence: None)
  Receive Date: 20111021
  Receipt Date: 20111017
  Transmission Date: 20120403
  Serious: Yes (Other)
  Sender: FDA-Public Use
  Company Number: US-AMGEN-USASP2011053764

PATIENT
  Sex: Male

DRUGS (2)
  1. NPLATE [Suspect]
     Indication: IDIOPATHIC THROMBOCYTOPENIC PURPURA
     Dosage: 5 MUG/KG, UNK
     Dates: start: 20091113, end: 20110921
  2. NPLATE [Suspect]
     Indication: THROMBOCYTOPENIA

REACTIONS (3)
  - MYELODYSPLASTIC SYNDROME [None]
  - BIOPSY BONE MARROW ABNORMAL [None]
  - THERAPEUTIC RESPONSE DECREASED [None]
